FAERS Safety Report 6977306-5 (Version None)
Quarter: 2010Q3

REPORT INFORMATION
  Report Type: 
  Country: None (occurrence: None)
  Receive Date: 20100910
  Receipt Date: 20100908
  Transmission Date: 20110219
  Serious: Yes (Life-Threatening, Other)
  Sender: FDA-Public Use
  Company Number: JP-BAYER-201014007BYL

PATIENT
  Age: 78 Year
  Sex: Male
  Weight: 70 kg

DRUGS (10)
  1. AVELOX [Suspect]
     Indication: PNEUMONIA
     Dosage: TOTAL DAILY DOSE: 400 MG  UNIT DOSE: 400 MG
     Route: 048
     Dates: start: 20100623, end: 20100629
  2. ANCARON [Suspect]
     Indication: ATRIAL FIBRILLATION
     Dosage: UNIT DOSE: 100 MG
     Route: 048
     Dates: end: 20100702
  3. ACARDI [Concomitant]
     Indication: CARDIAC FAILURE
     Dosage: UNIT DOSE: 1.25 MG
     Route: 048
     Dates: end: 20100702
  4. RENIVACE [Concomitant]
     Dosage: UNIT DOSE: 2.5 MG
     Route: 048
  5. LASIX [Concomitant]
     Dosage: UNIT DOSE: 20 MG
     Route: 065
  6. ALDACTONE [Concomitant]
     Dosage: UNIT DOSE: 25 MG
     Route: 048
  7. LIPITOR [Concomitant]
     Dosage: UNIT DOSE: 10 MG
     Route: 048
  8. WARFARIN [Concomitant]
     Dosage: UNIT DOSE: 1 MG
     Route: 048
  9. GENINAX [Concomitant]
     Indication: PNEUMONIA
     Dosage: UNIT DOSE: 200 MG
     Route: 048
     Dates: start: 20100630, end: 20100701
  10. CRAVIT [Concomitant]
     Indication: PNEUMONIA
     Dosage: UNIT DOSE: 500 MG
     Route: 048
     Dates: start: 20100518, end: 20100622

REACTIONS (4)
  - BRADYCARDIA [None]
  - SHOCK [None]
  - SINUS ARREST [None]
  - SYNCOPE [None]
